FAERS Safety Report 6870980-3 (Version None)
Quarter: 2010Q3

REPORT INFORMATION
  Report Type: 
  Country: None (occurrence: None)
  Receive Date: 20100723
  Receipt Date: 20100715
  Transmission Date: 20110219
  Serious: Yes (Hospitalization)
  Sender: FDA-Public Use
  Company Number: ES-AMGEN-QUU425242

PATIENT
  Age: 74 Year
  Sex: Female

DRUGS (3)
  1. ENBREL [Suspect]
     Indication: RHEUMATOID ARTHRITIS
     Route: 058
     Dates: start: 20090701, end: 20100427
  2. OMEPRAZOLE [Concomitant]
     Dosage: UNKNOWN
     Dates: start: 20070101
  3. TRAMADOL HCL [Concomitant]
     Dosage: UNKNOWN

REACTIONS (1)
  - WEIGHT INCREASED [None]
